FAERS Safety Report 6540468-8 (Version None)
Quarter: 2010Q1

REPORT INFORMATION
  Report Type: 
  Country: None (occurrence: None)
  Receive Date: 20100113
  Receipt Date: 20100105
  Transmission Date: 20100710
  Serious: Yes (Other)
  Sender: FDA-Public Use
  Company Number: 465843

PATIENT
  Age: 41 Year
  Sex: Female
  Weight: 63 kg

DRUGS (7)
  1. CYTARABINE [Suspect]
     Indication: DRUG USE FOR UNKNOWN INDICATION
     Dosage: 5250 MG CYCLICAL; INTRAVENOUS (NOT OTHERWISE SPECIFIED)
     Route: 042
  2. (CODEINE) [Concomitant]
  3. DIMENHYDRINATE [Concomitant]
  4. (DIPHENHYDRAMINE) [Concomitant]
  5. (GRANTSETRON HYDROCHLORIDE) [Concomitant]
  6. (MORPHINE) [Concomitant]
  7. PREDNISONE [Concomitant]

REACTIONS (1)
  - MYALGIA [None]
